FAERS Safety Report 6595682-2 (Version None)
Quarter: 2010Q1

REPORT INFORMATION
  Report Type: 
  Country: None (occurrence: None)
  Receive Date: 20100222
  Receipt Date: 20100222
  Transmission Date: 20100710
  Serious: Yes (Other)
  Sender: FDA-Public Use
  Company Number: None

PATIENT
  Sex: Female
  Weight: 74.8435 kg

DRUGS (5)
  1. ACTONEL [Suspect]
     Indication: OSTEOPOROSIS
     Dosage: 35 MG 1 PER WEEK 047
     Dates: start: 20080101, end: 20090210
  2. GLUCOSAMINE [Concomitant]
  3. LOVAZA [Concomitant]
  4. TYLENOL-500 [Concomitant]
  5. ASPIRIN [Concomitant]

REACTIONS (3)
  - EAR DISCOMFORT [None]
  - JAW DISORDER [None]
  - PAIN IN JAW [None]
